FAERS Safety Report 16321548 (Version 1)
Quarter: 2019Q2

REPORT INFORMATION
  Report Type: Spontaneous
  Country: US (occurrence: US)
  Receive Date: 20190516
  Receipt Date: 20190516
  Transmission Date: 20190711
  Serious: Yes (Other)
  Sender: FDA-Public Use
  Company Number: US-009507513-1905USA007117

PATIENT
  Sex: Female
  Weight: 109.75 kg

DRUGS (2)
  1. ANTIMICROBIAL (UNSPECIFIED) [Concomitant]
     Active Substance: UNSPECIFIED INGREDIENT
     Dosage: UNK
  2. NEXPLANON [Suspect]
     Active Substance: ETONOGESTREL
     Indication: CONTRACEPTION
     Dosage: IMPLANT, 5 YEARS; RIGHT ARM
     Route: 059
     Dates: start: 201711

REACTIONS (13)
  - Weight increased [Not Recovered/Not Resolved]
  - Incorrect product administration duration [Unknown]
  - Pregnancy with implant contraceptive [Not Recovered/Not Resolved]
  - Dizziness [Not Recovered/Not Resolved]
  - Implant site pain [Not Recovered/Not Resolved]
  - Abdominal pain [Not Recovered/Not Resolved]
  - Headache [Not Recovered/Not Resolved]
  - Implant site pruritus [Not Recovered/Not Resolved]
  - Implant site hypoaesthesia [Not Recovered/Not Resolved]
  - Unintended pregnancy [Not Recovered/Not Resolved]
  - Loss of consciousness [Not Recovered/Not Resolved]
  - Implant site irritation [Not Recovered/Not Resolved]
  - Circumstance or information capable of leading to medication error [Unknown]
